FAERS Safety Report 9489334 (Version 1)
Quarter: 2013Q3

REPORT INFORMATION
  Report Type: Spontaneous
  Country: US (occurrence: US)
  Receive Date: 20130829
  Receipt Date: 20130829
  Transmission Date: 20140515
  Serious: No
  Sender: FDA-Public Use
  Company Number: US-009507513-1308USA014483

PATIENT
  Sex: Male

DRUGS (2)
  1. DR. SCHOLL?S ODOR-X SPRAY POWDER [Suspect]
     Indication: PAIN IN EXTREMITY
     Dosage: UNK, UNKNOWN
     Route: 061
  2. DR. SCHOLL?S ODOR-X SPRAY POWDER [Suspect]
     Indication: PRODUCT USED FOR UNKNOWN INDICATION

REACTIONS (1)
  - Therapeutic product ineffective [Unknown]
